FAERS Safety Report 10534544 (Version 1)
Quarter: 2014Q4

REPORT INFORMATION
  Report Type: Spontaneous
  Country: FR (occurrence: FR)
  Receive Date: 20141022
  Receipt Date: 20141022
  Transmission Date: 20150529
  Serious: Yes (Hospitalization)
  Sender: FDA-Public Use
  Company Number: FR-ASTRAZENECA-2014SE79046

PATIENT
  Age: 25362 Day
  Sex: Male

DRUGS (6)
  1. SECTRAL [Suspect]
     Active Substance: ACEBUTOLOL HYDROCHLORIDE
     Route: 048
     Dates: start: 20140823, end: 20140825
  2. ASPIRINE PROTECT [Concomitant]
     Active Substance: ASPIRIN
     Route: 048
     Dates: start: 20140827
  3. ASPIRINE PROTECT [Concomitant]
     Active Substance: ASPIRIN
     Dates: start: 20140823, end: 20140825
  4. INEXIUM [Suspect]
     Active Substance: ESOMEPRAZOLE
     Route: 048
     Dates: start: 20130823, end: 20140825
  5. EFIENT [Suspect]
     Active Substance: PRASUGREL HYDROCHLORIDE
     Route: 048
     Dates: start: 20140823, end: 20140825
  6. TAHOR [Concomitant]
     Active Substance: ATORVASTATIN CALCIUM

REACTIONS (5)
  - Lymphocytosis [Unknown]
  - Eosinophilia [Unknown]
  - Liver function test abnormal [Unknown]
  - Acute generalised exanthematous pustulosis [Recovered/Resolved]
  - C-reactive protein increased [Unknown]

NARRATIVE: CASE EVENT DATE: 20140825
